FAERS Safety Report 8268850-1 (Version None)
Quarter: 2012Q2

REPORT INFORMATION
  Report Type: 
  Country: None (occurrence: None)
  Receive Date: 20120409
  Receipt Date: 20120409
  Transmission Date: 20120825
  Serious: Yes (Other)
  Sender: FDA-Public Use
  Company Number: None

PATIENT
  Age: 60 Year
  Sex: Male
  Weight: 108.86 kg

DRUGS (2)
  1. NIASPAN [Concomitant]
  2. NIASPAN [Suspect]
     Indication: LOW DENSITY LIPOPROTEIN INCREASED
     Dosage: 1 TABLET
     Route: 048
     Dates: start: 20111128, end: 20111215

REACTIONS (5)
  - FLUSHING [None]
  - ABDOMINAL PAIN UPPER [None]
  - ENURESIS [None]
  - DIARRHOEA [None]
  - IMPAIRED WORK ABILITY [None]
